FAERS Safety Report 8589264-0 (Version None)
Quarter: 2012Q3

REPORT INFORMATION
  Report Type: 
  Country: None (occurrence: None)
  Receive Date: 20120813
  Receipt Date: 20120808
  Transmission Date: 20120928
  Serious: Yes (Hospitalization)
  Sender: FDA-Public Use
  Company Number: US-PFIZER INC-2012193435

PATIENT
  Age: 55 Year
  Sex: Female

DRUGS (4)
  1. TRASTUZUMAB [Concomitant]
     Indication: CHEMOTHERAPY
     Dosage: UNK, WEEKLY
  2. VINORELBINE [Concomitant]
     Indication: CHEMOTHERAPY
     Dosage: UNK, WEEKLY
  3. DEXAMETHASONE SODIUM PHOSPHATE [Suspect]
     Dosage: 4 MG, 2X/DAY
     Route: 048
  4. DEXAMETHASONE SODIUM PHOSPHATE [Suspect]
     Dosage: 2 MG, ALTERNATE DAY

REACTIONS (1)
  - MANIA [None]
